FAERS Safety Report 23445580 (Version 1)
Quarter: 2024Q1

REPORT INFORMATION
  Report Type: Other
  Country: SE (occurrence: SE)
  Receive Date: 20240126
  Receipt Date: 20240126
  Transmission Date: 20240409
  Serious: Yes (Life-Threatening, Hospitalization)
  Sender: FDA-Public Use
  Company Number: None

PATIENT
  Age: 46 Year
  Sex: Female

DRUGS (1)
  1. OMNIPAQUE [Suspect]
     Active Substance: IOHEXOL
     Indication: Diagnostic procedure
     Dosage: 114 ML, TOTAL
     Route: 042
     Dates: start: 20240101, end: 20240101

REACTIONS (2)
  - Obstructive airways disorder [Unknown]
  - Cough [Unknown]

NARRATIVE: CASE EVENT DATE: 20240101
